FAERS Safety Report 24744606 (Version 8)
Quarter: 2025Q1

REPORT INFORMATION
  Report Type: Other
  Country: US (occurrence: US)
  Receive Date: 20241217
  Receipt Date: 20250227
  Transmission Date: 20250409
  Serious: Yes (Other)
  Sender: TRAVERE THERAPEUTICS
  Company Number: US-TRAVERE-2024TVT01205

PATIENT
  Age: 82 Year
  Sex: Female

DRUGS (7)
  1. FILSPARI [Suspect]
     Active Substance: SPARSENTAN
     Indication: IgA nephropathy
     Route: 048
     Dates: start: 20241114
  2. FILSPARI [Suspect]
     Active Substance: SPARSENTAN
     Route: 048
  3. FILSPARI [Suspect]
     Active Substance: SPARSENTAN
     Route: 048
  4. BENADRYL [Concomitant]
     Active Substance: DIPHENHYDRAMINE HYDROCHLORIDE
  5. ALAVERT ALLERGY [Concomitant]
     Active Substance: LORATADINE
  6. ZOLOFT [Concomitant]
     Active Substance: SERTRALINE HYDROCHLORIDE
  7. FRESH FROZEN PLASMA [Concomitant]
     Active Substance: HUMAN PLASMA

REACTIONS (16)
  - Haemorrhage urinary tract [Unknown]
  - Pneumonia [Unknown]
  - Nerve injury [Unknown]
  - Heart valve incompetence [Unknown]
  - Blood pressure abnormal [Unknown]
  - Renal disorder [Unknown]
  - Thyroid disorder [Unknown]
  - Pollakiuria [Unknown]
  - Nasopharyngitis [Unknown]
  - Influenza [Unknown]
  - Illness [Unknown]
  - Blood urine present [None]
  - Bronchitis viral [Unknown]
  - Swollen tongue [Unknown]
  - Haemoglobin decreased [Unknown]
  - Dysuria [Unknown]
